FAERS Safety Report 6960801-2 (Version None)
Quarter: 2010Q3

REPORT INFORMATION
  Report Type: 
  Country: None (occurrence: None)
  Receive Date: 20100901
  Receipt Date: 20100821
  Transmission Date: 20110219
  Serious: Yes (Death)
  Sender: FDA-Public Use
  Company Number: AU-PFIZER INC-2010109910

PATIENT
  Age: 83 Year
  Sex: Female

DRUGS (3)
  1. TRANEXAMIC ACID [Suspect]
  2. PHENYTOIN [Suspect]
     Indication: CONVULSION
  3. CARBAMAZEPINE [Concomitant]
     Indication: PARTIAL SEIZURES

REACTIONS (2)
  - CARDIOGENIC SHOCK [None]
  - RESPIRATORY FAILURE [None]
